FAERS Safety Report 23153782 (Version 2)
Quarter: 2023Q4

REPORT INFORMATION
  Report Type: Spontaneous
  Country: US (occurrence: US)
  Receive Date: 20231107
  Receipt Date: 20231111
  Transmission Date: 20240110
  Serious: Yes (Hospitalization, Other)
  Sender: FDA-Public Use
  Company Number: US-SA-SAC20231102001204

PATIENT
  Age: 80 Year
  Sex: Male

DRUGS (1)
  1. KEVZARA [Suspect]
     Active Substance: SARILUMAB
     Indication: Polymyalgia rheumatica
     Dosage: 200 MG, QOW
     Route: 058
     Dates: start: 20231027, end: 20231027

REACTIONS (7)
  - Systemic inflammatory response syndrome [Unknown]
  - Hyperhidrosis [Unknown]
  - Dyspnoea [Unknown]
  - Pyrexia [Unknown]
  - Chills [Unknown]
  - Arthralgia [Unknown]
  - Oropharyngeal pain [Unknown]

NARRATIVE: CASE EVENT DATE: 20231027
